FAERS Safety Report 22646563 (Version 1)
Quarter: 2023Q2

REPORT INFORMATION
  Report Type: Spontaneous
  Country: CN (occurrence: CN)
  Receive Date: 20230627
  Receipt Date: 20230627
  Transmission Date: 20230721
  Serious: Yes (Other)
  Sender: FDA-Public Use
  Company Number: CN-ELI_LILLY_AND_COMPANY-CN202306009277

PATIENT
  Age: 65 Year
  Sex: Female
  Weight: 61 kg

DRUGS (5)
  1. ALIMTA [Suspect]
     Active Substance: PEMETREXED DISODIUM
     Indication: Lung neoplasm malignant
     Dosage: 0.6 G, SINGLE
     Route: 041
     Dates: start: 20230606, end: 20230606
  2. BEVACIZUMAB [Suspect]
     Active Substance: BEVACIZUMAB
     Indication: Lung neoplasm malignant
     Dosage: 465 MG, SINGLE (DAY1)
     Route: 065
  3. PENPULIMAB [Suspect]
     Active Substance: PENPULIMAB
     Indication: Lung neoplasm malignant
     Dosage: 200 MG, OTHER (EVERY 21 DAYS)
     Route: 065
  4. CISPLATIN [Concomitant]
     Active Substance: CISPLATIN
     Indication: Lung neoplasm malignant
     Dosage: 30 MG, SINGLE (DAY 1)
     Route: 042
     Dates: start: 20230607, end: 20230607
  5. SODIUM CHLORIDE [Concomitant]
     Active Substance: SODIUM CHLORIDE
     Indication: Lung neoplasm malignant
     Dosage: UNK
     Dates: start: 20230606, end: 20230606

REACTIONS (7)
  - Discomfort [Recovering/Resolving]
  - Irritability [Recovering/Resolving]
  - Flushing [Recovering/Resolving]
  - Chest discomfort [Recovering/Resolving]
  - Blood pressure fluctuation [Recovering/Resolving]
  - Hyperhidrosis [Recovering/Resolving]
  - Sinus tachycardia [Recovering/Resolving]

NARRATIVE: CASE EVENT DATE: 20230606
